FAERS Safety Report 6842738-2 (Version None)
Quarter: 2010Q3

REPORT INFORMATION
  Report Type: 
  Country: None (occurrence: None)
  Receive Date: 20100714
  Receipt Date: 20070904
  Transmission Date: 20110219
  Serious: No
  Sender: FDA-Public Use
  Company Number: US-PFIZER INC-2007065250

PATIENT
  Sex: Female
  Weight: 54.4 kg

DRUGS (6)
  1. CHANTIX [Suspect]
     Indication: SMOKING CESSATION THERAPY
     Dosage: QD: EVERYDAY
     Dates: start: 20070501
  2. ANTIHYPERTENSIVES [Concomitant]
  3. CARDIAC THERAPY [Concomitant]
  4. ANTIGLAUCOMA PREPARATIONS AND MIOTICS [Concomitant]
  5. ANTIGLAUCOMA PREPARATIONS AND MIOTICS [Concomitant]
  6. NEURONTIN [Concomitant]

REACTIONS (2)
  - ABDOMINAL DISTENSION [None]
  - NAUSEA [None]
